FAERS Safety Report 4759178-2 (Version None)
Quarter: 2005Q3

REPORT INFORMATION
  Report Type: 
  Country: None (occurrence: None)
  Receive Date: 20050831
  Receipt Date: 20050816
  Transmission Date: 20060218
  Serious: Yes (Death, Other)
  Sender: FDA-Public Use
  Company Number: US_0508120822

PATIENT
  Sex: Female

DRUGS (2)
  1. GEMCITABINE HYDROCHLORIDE-IV (GEMCITABINE) [Suspect]
     Indication: OVARIAN EPITHELIAL CANCER
     Dosage: 650 MG/M2; OTHER
     Route: 050
  2. DOXORUBICIN [Concomitant]

REACTIONS (2)
  - FEBRILE NEUTROPENIA [None]
  - SEPSIS [None]
